FAERS Safety Report 20216683 (Version 1)
Quarter: 2021Q4

REPORT INFORMATION
  Report Type: Spontaneous
  Country: US (occurrence: None)
  Receive Date: 20211221
  Receipt Date: 20211221
  Transmission Date: 20220303
  Serious: Yes (Hospitalization)
  Sender: FDA-Public Use
  Company Number: None

PATIENT
  Age: 67 Year
  Sex: Male

DRUGS (3)
  1. PEMBROLIZUMAB [Suspect]
     Active Substance: PEMBROLIZUMAB
     Indication: Blister
     Dates: start: 20210420, end: 20210930
  2. PEMBROLIZUMAB [Suspect]
     Active Substance: PEMBROLIZUMAB
     Indication: Dermatitis exfoliative
  3. PEMBROLIZUMAB [Suspect]
     Active Substance: PEMBROLIZUMAB
     Indication: Erythema multiforme

REACTIONS (6)
  - Dermatitis [None]
  - Blister [None]
  - Adverse drug reaction [None]
  - Paraneoplastic pemphigus [None]
  - Erythema multiforme [None]
  - Dermatitis exfoliative [None]

NARRATIVE: CASE EVENT DATE: 20210907
